FAERS Safety Report 4544284-8 (Version None)
Quarter: 2004Q4

REPORT INFORMATION
  Report Type: 
  Country: None (occurrence: None)
  Receive Date: 20041230
  Receipt Date: 20041222
  Transmission Date: 20050328
  Serious: Yes (Disabling)
  Sender: FDA-Public Use
  Company Number: K200401961

PATIENT
  Age: 58 Year
  Sex: Female

DRUGS (3)
  1. KEMADRIN [Suspect]
  2. BUPROPION HYDROCHLORIDE [Suspect]
     Indication: SMOKING CESSATION THERAPY
     Dosage: 1 TAB, QD, ORAL
     Route: 048
     Dates: start: 20040701, end: 20040101
  3. THYROXINE SODIUM (LEVOTHYROXINE SODIUM) [Concomitant]

REACTIONS (2)
  - CHOREA [None]
  - DYSTONIA [None]
